FAERS Safety Report 6607857-4 (Version None)
Quarter: 2010Q1

REPORT INFORMATION
  Report Type: 
  Country: None (occurrence: None)
  Receive Date: 20100301
  Receipt Date: 20100222
  Transmission Date: 20100710
  Serious: Yes (Hospitalization)
  Sender: FDA-Public Use
  Company Number: US-ALEXION-A201000212

PATIENT
  Sex: Female

DRUGS (4)
  1. SOLIRIS [Suspect]
     Indication: PAROXYSMAL NOCTURNAL HAEMOGLOBINURIA
     Dosage: 600 MG, QW
     Route: 042
     Dates: start: 20091012, end: 20091102
  2. SOLIRIS [Suspect]
     Dosage: 900 MG
     Route: 042
     Dates: start: 20091109, end: 20091109
  3. SOLIRIS [Suspect]
     Dosage: 900 MG, Q2W
     Route: 042
     Dates: start: 20091218
  4. DIGOXIN [Concomitant]
     Dosage: UNK

REACTIONS (1)
  - DYSPHAGIA [None]
